FAERS Safety Report 5654485-3 (Version None)
Quarter: 2008Q1

REPORT INFORMATION
  Report Type: 
  Country: None (occurrence: None)
  Receive Date: 20080205
  Receipt Date: 20061218
  Transmission Date: 20080703
  Serious: Yes (Hospitalization)
  Sender: FDA-Public Use
  Company Number: MEDI-0004962

PATIENT
  Age: 58 Year
  Sex: Female
  Weight: 83.9154 kg

DRUGS (26)
  1. ETHYOL [Suspect]
     Dosage: 500 MG, 1 IN 1 D, SUBCUTANEOUS; 500 MG, 1 IN 1 D, SUBCUTANEOUS; 500 MG, 1 IN 1, D, SUBCUTANEOUS
     Route: 058
     Dates: start: 20060619, end: 20060626
  2. ETHYOL [Suspect]
     Dosage: 500 MG, 1 IN 1 D, SUBCUTANEOUS; 500 MG, 1 IN 1 D, SUBCUTANEOUS; 500 MG, 1 IN 1, D, SUBCUTANEOUS
     Route: 058
     Dates: start: 20060703, end: 20060703
  3. ETHYOL [Suspect]
     Dosage: 500 MG, 1 IN 1 D, SUBCUTANEOUS; 500 MG, 1 IN 1 D, SUBCUTANEOUS; 500 MG, 1 IN 1, D, SUBCUTANEOUS
     Route: 058
     Dates: start: 20060705, end: 20060705
  4. CISPLATIN [Concomitant]
  5. ALOXI [Concomitant]
  6. ATIVAN [Concomitant]
  7. DECADRON [Concomitant]
  8. EMEND (APREPITANT) [Concomitant]
  9. RADIATION THERAPY [Concomitant]
  10. DR. CLARK'S SUSPENSION ORAL [Concomitant]
  11. FLUCONAZOLE [Concomitant]
  12. PROCHLORPERAZINE MALEATE [Concomitant]
  13. HYDROCORTISONE [Concomitant]
  14. CETIRIZINE HCL [Concomitant]
  15. UBIDECARENONE (UBIDECARENONE) [Concomitant]
  16. LINOLEIC ACID/SUNFLOWER OIL [Concomitant]
  17. VITAMIN E MIXED (TOCOPHEROL) [Concomitant]
  18. PHYTONADIONE [Concomitant]
  19. GREEN LEAF EXTRACT [Concomitant]
  20. BETA-CAROTENE (BETACAROTENE) [Concomitant]
  21. BIOTIN [Concomitant]
  22. SALMON OIL [Concomitant]
  23. LACTOBACILLUS ACIDOPHILUS (LACTOBACILLUS ACIDOPHILUS) [Concomitant]
  24. EVENING PRIMROSE OIL (OENOTHERA BIENNIS OIL) [Concomitant]
  25. SELENIUM (SELENIUM) [Concomitant]
  26. ASCORBIC ACID/BIOFLAVORING [Concomitant]

REACTIONS (16)
  - BLOOD CREATININE INCREASED [None]
  - CHILLS [None]
  - DYSPHAGIA [None]
  - FATIGUE [None]
  - FEELING ABNORMAL [None]
  - HEADACHE [None]
  - MALAISE [None]
  - MUCOSAL INFLAMMATION [None]
  - NAUSEA [None]
  - NIGHT SWEATS [None]
  - PHARYNGOLARYNGEAL PAIN [None]
  - PYREXIA [None]
  - RADIATION SKIN INJURY [None]
  - SALIVARY HYPERSECRETION [None]
  - VOMITING [None]
  - WEIGHT DECREASED [None]
